FAERS Safety Report 9233869 (Version 4)
Quarter: 2013Q3

REPORT INFORMATION
  Report Type: Spontaneous
  Country: FR (occurrence: FR)
  Receive Date: 20130416
  Receipt Date: 20130710
  Transmission Date: 20140515
  Serious: Yes (Hospitalization, Other)
  Sender: FDA-Public Use
  Company Number: FR-PFIZER INC-2013114325

PATIENT
  Age: 85 Year
  Sex: Female

DRUGS (9)
  1. AMLODIPINE [Suspect]
     Indication: HYPERTENSION
     Dosage: 5 MG, UNK
     Dates: start: 2013
  2. OLMETEC [Concomitant]
     Dosage: 40 MG, UNK
  3. STAGID [Concomitant]
  4. DAFLON [Concomitant]
  5. INSULIN [Concomitant]
     Dosage: UNK
  6. LYSANXIA [Concomitant]
     Dosage: 0.5 DF IN THE MORNING, 0.5 DF AT NOON, AND 1 DF IN THE EVENING
  7. LYSANXIA [Concomitant]
     Dosage: 0.25 DF IN THE MORNING, 0.5 DF IN THE EVENING
  8. MAGNESIUM [Concomitant]
  9. CARDIOCALM [Concomitant]

REACTIONS (28)
  - Vertigo [Recovering/Resolving]
  - Diabetes mellitus inadequate control [Recovered/Resolved]
  - Left ventricular hypertrophy [Not Recovered/Not Resolved]
  - Thrombosis [Recovered/Resolved]
  - Flushing [Recovered/Resolved]
  - Hypotension [Recovered/Resolved]
  - Alopecia [Recovered/Resolved]
  - Hyperhidrosis [Not Recovered/Not Resolved]
  - Pruritus genital [Recovered/Resolved]
  - Muscle spasms [Recovered/Resolved]
  - Rhinitis [Not Recovered/Not Resolved]
  - Sleep disorder [Recovered/Resolved]
  - Palpitations [Recovered/Resolved]
  - Heart rate abnormal [Not Recovered/Not Resolved]
  - Arthritis [Recovered/Resolved]
  - Periarthritis [Recovered/Resolved]
  - Blood pressure abnormal [Recovered/Resolved]
  - Haemorrhoids [Recovered/Resolved]
  - Dysgeusia [Recovering/Resolving]
  - Decreased appetite [Not Recovered/Not Resolved]
  - Periodontitis [Not Recovered/Not Resolved]
  - Gingivitis [Recovering/Resolving]
  - Oedema peripheral [Recovering/Resolving]
  - Malaise [Recovered/Resolved]
  - Anxiety [Recovered/Resolved]
  - Dry mouth [Recovering/Resolving]
  - Tremor [Unknown]
  - Fatigue [Unknown]
